FAERS Safety Report 9896982 (Version 1)
Quarter: 2014Q1

REPORT INFORMATION
  Report Type: Spontaneous
  Country: US (occurrence: US)
  Receive Date: 20140214
  Receipt Date: 20140214
  Transmission Date: 20141002
  Serious: Yes (Other)
  Sender: FDA-Public Use
  Company Number: US-BIOGENIDEC-2014BI014396

PATIENT
  Sex: Female

DRUGS (2)
  1. AVONEX [Suspect]
     Indication: MULTIPLE SCLEROSIS
     Route: 030
  2. CYMBALTA [Concomitant]

REACTIONS (5)
  - Brain neoplasm [Not Recovered/Not Resolved]
  - Post procedural complication [Not Recovered/Not Resolved]
  - Injection site injury [Unknown]
  - Multiple sclerosis [Recovered/Resolved]
  - Drug ineffective [Unknown]
